FAERS Safety Report 7792246-X (Version None)
Quarter: 2011Q4

REPORT INFORMATION
  Report Type: 
  Country: None (occurrence: None)
  Receive Date: 20111003
  Receipt Date: 20110920
  Transmission Date: 20120403
  Serious: Yes (Life-Threatening, Hospitalization, Other)
  Sender: FDA-Public Use
  Company Number: US-ELI_LILLY_AND_COMPANY-US200912002144

PATIENT
  Sex: Male

DRUGS (20)
  1. FORTEO [Suspect]
     Dosage: 20 UG, DAILY (1/D)
     Route: 058
  2. FORTEO [Suspect]
     Dosage: 20 UG, QD
     Route: 058
  3. HUMALOG [Concomitant]
  4. FORTEO [Suspect]
     Indication: OSTEOPOROSIS
     Dosage: 20 UG, DAILY (1/D)
     Route: 058
     Dates: start: 20091001
  5. PLAVIX [Concomitant]
     Dosage: UNK, DAILY (1/D)
  6. LANTUS [Concomitant]
     Dosage: UNK, EACH EVENING
  7. FORTEO [Suspect]
     Dosage: 20 UG, DAILY (1/D)
     Route: 058
     Dates: start: 20090101
  8. DIGOXIN [Concomitant]
     Dosage: 0.125 UG, UNK
  9. ZOCOR [Concomitant]
     Dosage: UNK, DAILY (1/D)
  10. CALCIUM PLUS D3 [Concomitant]
  11. INSULIN [Concomitant]
     Indication: DIABETES MELLITUS
  12. ACIPHEX [Concomitant]
     Dosage: 20 UG, EACH MORNING
  13. CALCIUM WITH VITAMIN D [Concomitant]
     Dosage: 600 MG, 3/D
  14. LOVAZA [Concomitant]
     Dosage: UNK, DAILY (1/D)
  15. SLO-MAG [Concomitant]
     Dosage: UNK, QOD
  16. SYNTHROID [Concomitant]
     Dosage: .88 MG, EACH MORNING
  17. CENTRUM SILVER [Concomitant]
     Dosage: UNK, DAILY (1/D)
  18. VITAMIN B-12 [Concomitant]
     Dosage: UNK, MONTHLY (1/M)
  19. SYNTHROID [Concomitant]
     Dosage: 75 MG, EACH MORNING
  20. ASPIRIN [Concomitant]
     Dosage: 81 MG, UNK

REACTIONS (10)
  - RASH [None]
  - ELECTROLYTE IMBALANCE [None]
  - FLUSHING [None]
  - BLOOD SODIUM [None]
  - CARDIAC ARREST [None]
  - BLOOD GLUCOSE INCREASED [None]
  - SKIN REACTION [None]
  - WEIGHT DECREASED [None]
  - CORONARY ARTERY OCCLUSION [None]
  - BLOOD POTASSIUM [None]
